FAERS Safety Report 20479940 (Version 1)
Quarter: 2022Q1

REPORT INFORMATION
  Report Type: Spontaneous
  Country: US (occurrence: US)
  Receive Date: 20220216
  Receipt Date: 20220216
  Transmission Date: 20220423
  Serious: No
  Sender: FDA-Public Use
  Company Number: US-ORGANON-O2202USA000411

PATIENT
  Age: 20 Year
  Sex: Male

DRUGS (9)
  1. ELOCON [Suspect]
     Active Substance: MOMETASONE FUROATE
     Indication: Cheilitis
     Dosage: UNK
     Route: 061
  2. ELOCON [Suspect]
     Active Substance: MOMETASONE FUROATE
     Indication: Oral candidiasis
  3. PETROLEUM JELLY [Concomitant]
     Active Substance: PETROLATUM
     Indication: Lip exfoliation
     Dosage: UNK
  4. HYDROCORTISONE [Concomitant]
     Active Substance: HYDROCORTISONE
     Indication: Lip exfoliation
     Dosage: UNK
  5. NYSTATIN [Concomitant]
     Active Substance: NYSTATIN
     Indication: Lip exfoliation
     Dosage: UNK
  6. SULFAMETHOXAZOLE\TRIMETHOPRIM [Concomitant]
     Active Substance: SULFAMETHOXAZOLE\TRIMETHOPRIM
     Indication: Lip exfoliation
     Dosage: UNK
  7. AZITHROMYCIN [Concomitant]
     Active Substance: AZITHROMYCIN
     Indication: Lip exfoliation
     Dosage: UNK
  8. PREDNISONE [Concomitant]
     Active Substance: PREDNISONE
     Indication: Lip exfoliation
     Dosage: UNK
  9. VITAMIN E [Concomitant]
     Active Substance: .ALPHA.-TOCOPHEROL
     Indication: Lip exfoliation
     Dosage: UNK

REACTIONS (1)
  - Drug ineffective [Unknown]
